FAERS Safety Report 4871808-3 (Version None)
Quarter: 2006Q1

REPORT INFORMATION
  Report Type: 
  Country: None (occurrence: None)
  Receive Date: 20060104
  Receipt Date: 20051228
  Transmission Date: 20060701
  Serious: Yes (Hospitalization)
  Sender: FDA-Public Use
  Company Number: FR-GLAXOSMITHKLINE-B0405071A

PATIENT
  Age: 49 Year
  Sex: Male

DRUGS (8)
  1. EPIVIR [Suspect]
     Indication: HIV INFECTION
     Dosage: 1TAB TWICE PER DAY
     Route: 048
     Dates: start: 19970929
  2. ZIAGEN [Suspect]
     Indication: HIV INFECTION
     Dosage: 1TAB TWICE PER DAY
     Route: 048
     Dates: start: 20010919
  3. VIRACEPT [Suspect]
     Indication: HIV INFECTION
     Dosage: 5UNIT TWICE PER DAY
     Route: 048
     Dates: start: 19981130
  4. PREVISCAN [Suspect]
     Dosage: .25TAB PER DAY
     Route: 048
  5. SOTALOL HCL [Suspect]
     Dosage: .5TAB TWICE PER DAY
     Route: 048
  6. NEURONTIN [Suspect]
     Dosage: 1200MG PER DAY
     Route: 048
  7. SEROPRAM [Concomitant]
     Dosage: 1UNIT PER DAY
     Route: 048
  8. RIVOTRIL [Concomitant]
     Dosage: 4UNIT PER DAY
     Route: 048

REACTIONS (4)
  - ACUTE CORONARY SYNDROME [None]
  - ANGINA UNSTABLE [None]
  - ATRIAL FLUTTER [None]
  - CORONARY ARTERY STENOSIS [None]
